FAERS Safety Report 8122507-6 (Version None)
Quarter: 2012Q1

REPORT INFORMATION
  Report Type: 
  Country: None (occurrence: None)
  Receive Date: 20120207
  Receipt Date: 20120207
  Transmission Date: 20120608
  Serious: No
  Sender: FDA-Public Use
  Company Number: None

PATIENT
  Sex: Female
  Weight: 58.2 kg

DRUGS (1)
  1. ESTRADIOL [Suspect]
     Indication: POSTMENOPAUSE
     Dosage: GENERIC ESTRADIOL WEEKLY TOPICALLY
     Route: 061
     Dates: start: 20110126, end: 20110401

REACTIONS (5)
  - PRODUCT ADHESION ISSUE [None]
  - EMOTIONAL DISORDER [None]
  - INAPPROPRIATE SCHEDULE OF DRUG ADMINISTRATION [None]
  - APPLICATION SITE IRRITATION [None]
  - INCORRECT DOSE ADMINISTERED BY DEVICE [None]
